FAERS Safety Report 10075703 (Version 1)
Quarter: 2014Q2

REPORT INFORMATION
  Report Type: Spontaneous
  Country: US (occurrence: US)
  Receive Date: 20140414
  Receipt Date: 20140414
  Transmission Date: 20141212
  Serious: Yes (Death)
  Sender: FDA-Public Use
  Company Number: US-MERCK-1404USA005742

PATIENT
  Age: 98 Year
  Sex: Female

DRUGS (5)
  1. JANUVIA [Suspect]
     Route: 048
  2. IMDUR [Suspect]
     Route: 048
  3. MORPHINE [Concomitant]
  4. ATIVAN [Concomitant]
  5. LORAZEPAM [Concomitant]

REACTIONS (1)
  - Cardiac failure congestive [Fatal]
